FAERS Safety Report 15407649 (Version 1)
Quarter: 2018Q3

REPORT INFORMATION
  Report Type: Spontaneous
  Country: US (occurrence: US)
  Receive Date: 20180920
  Receipt Date: 20180920
  Transmission Date: 20181010
  Serious: Yes (Life-Threatening, Hospitalization, Disabling, Other)
  Sender: FDA-Public Use
  Company Number: US-JNJFOC-20180920981

PATIENT
  Age: 56 Year
  Sex: Male

DRUGS (1)
  1. INVOKAMET XR [Suspect]
     Active Substance: CANAGLIFLOZIN\METFORMIN HYDROCHLORIDE
     Indication: TYPE 2 DIABETES MELLITUS
     Dosage: DOSE: 150/1000 MG
     Route: 048

REACTIONS (1)
  - Necrotising fasciitis [Recovering/Resolving]
